FAERS Safety Report 6418316-6 (Version None)
Quarter: 2009Q4

REPORT INFORMATION
  Report Type: 
  Country: None (occurrence: None)
  Receive Date: 20091028
  Receipt Date: 20091009
  Transmission Date: 20100525
  Serious: Yes (Disabling)
  Sender: FDA-Public Use
  Company Number: FR-B.I. PHARMACEUTICALS,INC./RIDGEFIELD-2009-FF-00693FF

PATIENT
  Sex: Male
  Weight: 85 kg

DRUGS (6)
  1. MECIR LP 0.4 [Suspect]
     Indication: PROSTATIC ADENOMA
     Dosage: 0.4 MG
     Route: 048
     Dates: start: 20090929, end: 20091008
  2. DIAMICRON [Concomitant]
     Indication: DIABETES MELLITUS
     Dosage: 80 MG
     Route: 048
  3. LIPANTHYL [Concomitant]
     Indication: DYSLIPIDAEMIA
     Dosage: 145 MG
     Route: 048
  4. LODINE [Concomitant]
     Indication: ANTIINFLAMMATORY THERAPY
     Dosage: 200 MG
     Route: 048
  5. LANSOPRAZOLE [Concomitant]
     Indication: ACID BASE BALANCE ABNORMAL
     Dosage: 15 MG
     Route: 048
  6. ACETAMINOPHEN [Concomitant]
     Indication: PAIN
     Dosage: 3 G
     Route: 048

REACTIONS (8)
  - ABDOMINAL PAIN [None]
  - DYSURIA [None]
  - FATIGUE [None]
  - FREQUENT BOWEL MOVEMENTS [None]
  - GENITAL PAIN [None]
  - POLLAKIURIA [None]
  - POLYURIA [None]
  - SOMNOLENCE [None]
